FAERS Safety Report 21453487 (Version 3)
Quarter: 2022Q4

REPORT INFORMATION
  Report Type: Report from Study
  Country: US (occurrence: US)
  Receive Date: 20221013
  Receipt Date: 20221212
  Transmission Date: 20230113
  Serious: Yes (Hospitalization)
  Sender: FDA-Public Use
  Company Number: US-ABBVIE-4153730

PATIENT
  Sex: Male

DRUGS (1)
  1. SKYRIZI [Suspect]
     Active Substance: RISANKIZUMAB-RZAA
     Indication: Crohn^s disease
     Route: 058

REACTIONS (9)
  - Blood pressure increased [Recovered/Resolved]
  - Blood pressure increased [Recovering/Resolving]
  - Lethargy [Unknown]
  - Headache [Recovered/Resolved]
  - Dyspnoea [Recovered/Resolved]
  - Fatigue [Recovered/Resolved]
  - Pain in extremity [Not Recovered/Not Resolved]
  - Back pain [Not Recovered/Not Resolved]
  - Hospitalisation [Recovered/Resolved]
